FAERS Safety Report 4909173-5 (Version None)
Quarter: 2006Q1

REPORT INFORMATION
  Report Type: 
  Country: None (occurrence: None)
  Receive Date: 20060208
  Receipt Date: 20060126
  Transmission Date: 20060701
  Serious: Yes (Hospitalization)
  Sender: FDA-Public Use
  Company Number: CERZ-11125

PATIENT
  Age: 58 Year
  Sex: Female
  Weight: 62.5964 kg

DRUGS (2)
  1. CEREZYME [Suspect]
     Indication: GAUCHER'S DISEASE
  2. ALBUTEROL [Concomitant]

REACTIONS (8)
  - ANAEMIA [None]
  - CYANOSIS [None]
  - DIZZINESS [None]
  - DYSPNOEA EXERTIONAL [None]
  - FEELING ABNORMAL [None]
  - HYPERHIDROSIS [None]
  - HYPOTENSION [None]
  - OXYGEN SATURATION DECREASED [None]
